FAERS Safety Report 15412758 (Version 3)
Quarter: 2019Q1

REPORT INFORMATION
  Report Type: Report from Study
  Country: CA (occurrence: CA)
  Receive Date: 20180921
  Receipt Date: 20190315
  Transmission Date: 20190417
  Serious: Yes (Hospitalization)
  Sender: FDA-Public Use
  Company Number: PHHY2018CA010068

PATIENT
  Age: 58 Year
  Sex: Female

DRUGS (1)
  1. SANDOSTATIN LAR DEPOT [Suspect]
     Active Substance: OCTREOTIDE ACETATE
     Indication: CARCINOID TUMOUR
     Dosage: 30 MG, QMO (EVERY 4 WEEKS)
     Route: 030
     Dates: start: 20170517

REACTIONS (6)
  - Diarrhoea [Recovering/Resolving]
  - Blood pressure increased [Unknown]
  - Mobility decreased [Unknown]
  - Dehydration [Unknown]
  - Hepatic cyst [Unknown]
  - Anxiety [Unknown]

NARRATIVE: CASE EVENT DATE: 20180517
